FAERS Safety Report 4761803-7 (Version None)
Quarter: 2005Q3

REPORT INFORMATION
  Report Type: 
  Country: None (occurrence: None)
  Receive Date: 20050831
  Receipt Date: 20050602
  Transmission Date: 20060218
  Serious: No
  Sender: FDA-Public Use
  Company Number: PHEH2005US06264

PATIENT
  Age: 84 Year
  Sex: Female

DRUGS (1)
  1. ENABLEX [Suspect]
     Indication: POLLAKIURIA
     Dosage: ORAL
     Route: 048
     Dates: start: 20050530

REACTIONS (1)
  - RASH [None]
